FAERS Safety Report 6870847-0 (Version None)
Quarter: 2010Q3

REPORT INFORMATION
  Report Type: 
  Country: None (occurrence: None)
  Receive Date: 20100723
  Receipt Date: 20100714
  Transmission Date: 20110219
  Serious: Yes (Hospitalization)
  Sender: FDA-Public Use
  Company Number: US-NOVOPROD-311456

PATIENT
  Sex: Female
  Weight: 79.365 kg

DRUGS (3)
  1. VICTOZA [Suspect]
     Indication: TYPE 2 DIABETES MELLITUS
     Dosage: UNKNOWN, QD
     Route: 058
     Dates: start: 20100201, end: 20100301
  2. VICTOZA [Suspect]
     Indication: WEIGHT DECREASED
  3. VICTOZA [Suspect]
     Indication: OFF LABEL USE

REACTIONS (8)
  - ABDOMINAL DISTENSION [None]
  - DIZZINESS [None]
  - HEADACHE [None]
  - HEART RATE INCREASED [None]
  - LOSS OF CONSCIOUSNESS [None]
  - NAUSEA [None]
  - RIB FRACTURE [None]
  - VOMITING [None]
